FAERS Safety Report 23135537 (Version 1)
Quarter: 2023Q4

REPORT INFORMATION
  Report Type: Spontaneous
  Country: US (occurrence: US)
  Receive Date: 20231101
  Receipt Date: 20231101
  Transmission Date: 20240110
  Serious: Yes (Death, Hospitalization, Other)
  Sender: FDA-Public Use
  Company Number: US-GRANULES-US-2023GRALIT00301

PATIENT
  Age: 37 Year
  Sex: Female

DRUGS (1)
  1. COLCHICINE [Suspect]
     Active Substance: COLCHICINE
     Indication: Product used for unknown indication
     Dosage: 40 TABLETS OF 0.6 MG OF COLCHICINE (24MG; 0.33 MG/KG)
     Route: 048

REACTIONS (7)
  - Acute respiratory distress syndrome [Fatal]
  - Lactic acidosis [Fatal]
  - Toxicity to various agents [Fatal]
  - Acute kidney injury [Fatal]
  - Shock [Fatal]
  - Multiple organ dysfunction syndrome [Fatal]
  - Overdose [Unknown]
